FAERS Safety Report 17525402 (Version 1)
Quarter: 2020Q1

REPORT INFORMATION
  Report Type: Spontaneous
  Country: US (occurrence: US)
  Receive Date: 20200303
  Receipt Date: 20200303
  Transmission Date: 20200409
  Serious: Yes (Hospitalization)
  Sender: FDA-Public Use
  Company Number: None

PATIENT
  Age: 79 Year
  Sex: Male

DRUGS (1)
  1. GLIPIZIDE (GLIPIZIDE 10MG TAB, SA) [Suspect]
     Active Substance: GLIPIZIDE
     Indication: DIABETES MELLITUS
     Route: 048
     Dates: start: 20150619, end: 20200225

REACTIONS (5)
  - Influenza [None]
  - Mental status changes [None]
  - Hypophagia [None]
  - Confusional state [None]
  - Hypoglycaemia [None]

NARRATIVE: CASE EVENT DATE: 20200225
